FAERS Safety Report 19349502 (Version 1)
Quarter: 2021Q2

REPORT INFORMATION
  Report Type: Spontaneous
  Country: US (occurrence: US)
  Receive Date: 20210531
  Receipt Date: 20210531
  Transmission Date: 20210717
  Serious: Yes (Other)
  Sender: FDA-Public Use
  Company Number: US-STRIDES ARCOLAB LIMITED-2020SP006988

PATIENT
  Age: 64 Year
  Sex: Male

DRUGS (3)
  1. TOBRAMYCIN. [Concomitant]
     Active Substance: TOBRAMYCIN
     Indication: ARTHRITIS INFECTIVE
     Dosage: 2.4 GRAM, UNK, CEMENT SPACER/BEADS IMPREGNATED
     Route: 065
  2. VANCOMYCIN [Suspect]
     Active Substance: VANCOMYCIN
     Indication: ARTHRITIS INFECTIVE
     Dosage: 4 GRAM,  UNK, CEMENT SPACER/BEADS IMPREGNATED
     Route: 042
  3. ENOXAPARIN [Concomitant]
     Active Substance: ENOXAPARIN
     Indication: ARTHRITIS INFECTIVE
     Dosage: UNK,
     Route: 065

REACTIONS (1)
  - Immune thrombocytopenia [Recovered/Resolved]
